FAERS Safety Report 18428867 (Version 3)
Quarter: 2020Q4

REPORT INFORMATION
  Report Type: Report from Study
  Country: US (occurrence: US)
  Receive Date: 20201027
  Receipt Date: 20201210
  Transmission Date: 20210114
  Serious: Yes (Death, Hospitalization, Other)
  Sender: FDA-Public Use
  Company Number: US-BRISTOL-MYERS SQUIBB COMPANY-BMS-2020-088316

PATIENT
  Age: 71 Year
  Sex: Male
  Weight: 86.2 kg

DRUGS (2)
  1. NIVOLUMAB [Suspect]
     Active Substance: NIVOLUMAB
     Indication: SQUAMOUS CELL CARCINOMA OF SKIN
     Dosage: 250 MILLIGRAM
     Route: 065
     Dates: start: 20200924, end: 20201007
  2. TALIMOGENE LAHERPAREPVEC [Suspect]
     Active Substance: TALIMOGENE LAHERPAREPVEC
     Indication: SQUAMOUS CELL CARCINOMA OF SKIN
     Dosage: 4 MILLILITER
     Route: 065
     Dates: start: 20200924, end: 20201007

REACTIONS (5)
  - Sepsis [Recovered/Resolved]
  - Confusional state [Not Recovered/Not Resolved]
  - Death [Fatal]
  - Hypoxia [Not Recovered/Not Resolved]
  - Hypotension [Not Recovered/Not Resolved]

NARRATIVE: CASE EVENT DATE: 20201007
